FAERS Safety Report 11347665 (Version 1)
Quarter: 2015Q3

REPORT INFORMATION
  Report Type: Spontaneous
  Country: US (occurrence: US)
  Receive Date: 20150803
  Receipt Date: 20150803
  Transmission Date: 20151125
  Serious: No
  Sender: FDA-Public Use
  Company Number: US-ELI_LILLY_AND_COMPANY-US201006003981

PATIENT
  Sex: Male

DRUGS (9)
  1. ZYPREXA [Suspect]
     Active Substance: OLANZAPINE
     Dosage: 5 MG, EACH EVENING
  2. ZYPREXA [Suspect]
     Active Substance: OLANZAPINE
     Dosage: 10 MG, EACH EVENING
  3. SEROQUEL [Concomitant]
     Active Substance: QUETIAPINE FUMARATE
  4. GABA                               /00522701/ [Concomitant]
  5. ZYPREXA [Suspect]
     Active Substance: OLANZAPINE
     Dosage: 20 MG, DAILY (1/D)
  6. ZYPREXA [Suspect]
     Active Substance: OLANZAPINE
     Indication: SCHIZOPHRENIA
     Dosage: 10 MG, QD
  7. ZYPREXA [Suspect]
     Active Substance: OLANZAPINE
     Dosage: 30 MG, DAILY (1/D)
  8. ZYPREXA [Suspect]
     Active Substance: OLANZAPINE
     Dosage: 40 MG, QD
  9. ZYPREXA [Suspect]
     Active Substance: OLANZAPINE
     Dosage: 10 MG, EACH EVENING

REACTIONS (19)
  - Insomnia [Unknown]
  - Restlessness [Not Recovered/Not Resolved]
  - Prescribed overdose [Recovered/Resolved]
  - Abulia [Unknown]
  - Lethargy [Unknown]
  - Psychotic disorder [Unknown]
  - Anger [Unknown]
  - Social avoidant behaviour [Unknown]
  - Agitation [Not Recovered/Not Resolved]
  - Aggression [Unknown]
  - Attention deficit/hyperactivity disorder [Unknown]
  - Sedation [Unknown]
  - General physical condition [Unknown]
  - Confusional state [Not Recovered/Not Resolved]
  - Speech disorder [Not Recovered/Not Resolved]
  - Drug dose omission [Unknown]
  - Stupor [Not Recovered/Not Resolved]
  - Somnolence [Not Recovered/Not Resolved]
  - Weight increased [Unknown]
